FAERS Safety Report 18352184 (Version 1)
Quarter: 2020Q4

REPORT INFORMATION
  Report Type: Other
  Country: US (occurrence: US)
  Receive Date: 20201007
  Receipt Date: 20201007
  Transmission Date: 20210114
  Serious: Yes (Other)
  Sender: FDA-Public Use
  Company Number: US-INTERCEPT-PM2020001618

PATIENT
  Age: 51 Year
  Sex: Male
  Weight: 63.04 kg

DRUGS (7)
  1. CARDURA [Concomitant]
     Active Substance: DOXAZOSIN MESYLATE
     Dosage: 4 MG, QD
     Route: 048
  2. OCALIVA [Suspect]
     Active Substance: OBETICHOLIC ACID
     Indication: PRIMARY BILIARY CHOLANGITIS
     Dosage: 5 MG, QD
     Route: 048
     Dates: start: 20200720, end: 20200724
  3. CYMBALTA [Concomitant]
     Active Substance: DULOXETINE HYDROCHLORIDE
     Dosage: 30 MG, QD
     Route: 048
  4. ASPIRIN EC [Concomitant]
     Active Substance: ASPIRIN
     Dosage: 81 MG, QD
     Route: 048
  5. SEROQUEL [Concomitant]
     Active Substance: QUETIAPINE FUMARATE
     Dosage: 600 MG, QHS
     Route: 048
  6. ATARAX [Concomitant]
     Active Substance: HYDROXYZINE HYDROCHLORIDE
     Dosage: 50 MG, BID (AT 6AM AND 2PM)
     Route: 048
  7. OCALIVA [Suspect]
     Active Substance: OBETICHOLIC ACID
     Dosage: 5 MG, QD
     Route: 048
     Dates: start: 20200729, end: 20200729

REACTIONS (10)
  - Vomiting [Recovered/Resolved]
  - Melaena [Recovered/Resolved]
  - Aspartate aminotransferase increased [Not Recovered/Not Resolved]
  - Blood bilirubin increased [Not Recovered/Not Resolved]
  - Haematuria [Recovered/Resolved]
  - Drug intolerance [Recovered/Resolved]
  - Nausea [Recovered/Resolved]
  - Abdominal pain lower [Not Recovered/Not Resolved]
  - Abdominal discomfort [Recovered/Resolved]
  - Alanine aminotransferase increased [Not Recovered/Not Resolved]

NARRATIVE: CASE EVENT DATE: 2020
